FAERS Safety Report 5383529-1 (Version None)
Quarter: 2007Q3

REPORT INFORMATION
  Report Type: 
  Country: None (occurrence: None)
  Receive Date: 20070706
  Receipt Date: 20070622
  Transmission Date: 20080115
  Serious: Yes (Hospitalization, Other)
  Sender: FDA-Public Use
  Company Number: 2007RR-08013

PATIENT
  Age: 76 Year
  Sex: Female

DRUGS (22)
  1. GABAPENTIN [Suspect]
     Indication: NEURALGIA
     Dosage: SEE IMAGE
     Dates: start: 20070425, end: 20070425
  2. GABAPENTIN [Suspect]
     Indication: NEURALGIA
     Dosage: SEE IMAGE
     Dates: start: 20070426, end: 20070429
  3. GABAPENTIN [Suspect]
     Indication: NEURALGIA
     Dosage: SEE IMAGE
     Dates: start: 20070430, end: 20070430
  4. GABAPENTIN [Suspect]
     Indication: NEURALGIA
     Dosage: SEE IMAGE
     Dates: start: 20070501, end: 20070503
  5. ASPIRIN [Concomitant]
  6. ATENOLOL [Concomitant]
  7. BENDROFLUMETHIAZIDE (BENDROFLUMETHIAZIDE) [Concomitant]
  8. CLONIDINE [Concomitant]
  9. CODEINE PHOSPHATE AND ACETAMINOPHEN [Concomitant]
  10. DIAZEPAM [Concomitant]
  11. DOMPERIDONE (DOMPERIDONE) [Concomitant]
  12. HALOPERIDOL [Concomitant]
  13. IBUPROFEN [Concomitant]
  14. MIXTARD HUMAN 70/30 [Concomitant]
  15. NYSTATIN [Concomitant]
  16. OMEPRAZOLE [Concomitant]
  17. PARACETAMOL (ACETAMINOPHEN/PARACETAMOL) [Concomitant]
  18. PAROXETINE [Concomitant]
  19. QUETIAPINE [Concomitant]
  20. RAMIPRIL [Concomitant]
  21. TAMOXIFEN CITRATE [Concomitant]
  22. PEPTAC [Concomitant]

REACTIONS (2)
  - CONDITION AGGRAVATED [None]
  - LIVER FUNCTION TEST ABNORMAL [None]
